FAERS Safety Report 13581569 (Version 2)
Quarter: 2017Q2

REPORT INFORMATION
  Report Type: Spontaneous
  Country: IT (occurrence: IT)
  Receive Date: 20170525
  Receipt Date: 20170609
  Transmission Date: 20170830
  Serious: Yes (Hospitalization)
  Sender: FDA-Public Use
  Company Number: IT-ACCORD-051721

PATIENT
  Age: 72 Year
  Sex: Male
  Weight: 85 kg

DRUGS (9)
  1. IRON [Concomitant]
     Active Substance: IRON
     Indication: PRODUCT USED FOR UNKNOWN INDICATION
     Route: 042
     Dates: start: 20170124, end: 20170315
  2. DECADRON [Concomitant]
     Active Substance: DEXAMETHASONE
     Indication: PRODUCT USED FOR UNKNOWN INDICATION
     Dosage: 8 MG/2 ML
     Route: 042
     Dates: start: 20161205, end: 20170315
  3. EPOETIN ZETA [Concomitant]
     Active Substance: ERYTHROPOIETIN
     Indication: PRODUCT USED FOR UNKNOWN INDICATION
     Dosage: 40000 IU
     Route: 058
     Dates: start: 20170118, end: 20170315
  4. ONDANSETRON/ONDANSETRON HYDROCHLORIDE [Concomitant]
     Indication: PRODUCT USED FOR UNKNOWN INDICATION
     Dosage: 8 MG
     Route: 042
     Dates: start: 20161205, end: 20170315
  5. ATROPINE. [Concomitant]
     Active Substance: ATROPINE
     Indication: PRODUCT USED FOR UNKNOWN INDICATION
     Route: 042
     Dates: start: 20161205, end: 20170315
  6. FLUOROURACIL. [Suspect]
     Active Substance: FLUOROURACIL
     Indication: CARCINOID TUMOUR OF THE CAECUM
     Route: 042
     Dates: start: 20161205, end: 20170315
  7. IRINOTECAN [Suspect]
     Active Substance: IRINOTECAN
     Indication: CARCINOID TUMOUR OF THE CAECUM
     Route: 042
     Dates: start: 20161205, end: 20170315
  8. AFLIBERCEPT [Suspect]
     Active Substance: AFLIBERCEPT
     Indication: CARCINOID TUMOUR OF THE CAECUM
     Route: 042
     Dates: start: 20161205, end: 20170315
  9. CALCIUM LEVOFOLINATE [Concomitant]
     Active Substance: LEVOLEUCOVORIN CALCIUM
     Indication: PRODUCT USED FOR UNKNOWN INDICATION
     Dosage: 300 MG
     Route: 042
     Dates: start: 20161205, end: 20170315

REACTIONS (3)
  - Off label use [Unknown]
  - Asthenia [Recovering/Resolving]
  - Diarrhoea [Recovering/Resolving]

NARRATIVE: CASE EVENT DATE: 20170324
